FAERS Safety Report 5295275-3 (Version None)
Quarter: 2007Q2

REPORT INFORMATION
  Report Type: 
  Country: None (occurrence: None)
  Receive Date: 20070412
  Receipt Date: 20070403
  Transmission Date: 20071010
  Serious: Yes (Disabling)
  Sender: FDA-Public Use
  Company Number: GB-PFIZER INC-2007027211

PATIENT
  Sex: Male

DRUGS (8)
  1. LYRICA [Suspect]
     Indication: NEURALGIA
     Route: 048
     Dates: start: 20070201, end: 20070318
  2. ASPIRIN [Concomitant]
     Indication: CARDIAC DISORDER
  3. BISOPRODOL FUMARATE [Concomitant]
     Indication: CARDIAC FAILURE
     Dates: start: 19950601
  4. BUMETANIDE [Concomitant]
     Indication: HYPERTENSION
     Dates: start: 19950101
  5. GLYCERYL TRINITRATE [Concomitant]
     Dates: start: 20000101
  6. OMEPRAZOLE [Concomitant]
     Indication: GASTRITIS
     Dates: start: 20000501
  7. PREDNISOLONE [Concomitant]
     Indication: CHRONIC OBSTRUCTIVE PULMONARY DISEASE
     Dates: start: 20020901
  8. SIMVASTATIN [Concomitant]
     Indication: BLOOD CHOLESTEROL INCREASED
     Dates: start: 20051001

REACTIONS (5)
  - BURNING SENSATION [None]
  - DYSPNOEA [None]
  - MOBILITY DECREASED [None]
  - OEDEMA PERIPHERAL [None]
  - PAIN [None]
